FAERS Safety Report 25987123 (Version 1)
Quarter: 2025Q4

REPORT INFORMATION
  Report Type: Other
  Country: US (occurrence: US)
  Receive Date: 20251103
  Receipt Date: 20251103
  Transmission Date: 20260118
  Serious: Yes (Other)
  Sender: ANI
  Company Number: US-ANIPHARMA-031018

PATIENT
  Age: 12 Year
  Sex: Female

DRUGS (1)
  1. CIMETIDINE [Suspect]
     Active Substance: CIMETIDINE
     Indication: Skin papilloma

REACTIONS (2)
  - Acute kidney injury [Recovering/Resolving]
  - Hyperuricaemia [Recovered/Resolved]
